FAERS Safety Report 5307234-2 (Version None)
Quarter: 2007Q2

REPORT INFORMATION
  Report Type: 
  Country: None (occurrence: None)
  Receive Date: 20070423
  Receipt Date: 20070423
  Transmission Date: 20071010
  Serious: Yes (Hospitalization)
  Sender: FDA-Public Use
  Company Number: None

PATIENT
  Sex: Female
  Weight: 52 kg

DRUGS (9)
  1. XELODA [Suspect]
     Dosage: 54000 MG
  2. CAMPTOSAR [Suspect]
     Dosage: 160 MG
  3. ASPIRIN [Concomitant]
  4. FISH OIL [Concomitant]
  5. K-DUR 10 [Concomitant]
  6. LASIX [Concomitant]
  7. LIPITOR [Concomitant]
  8. MULTIVITAMIN WITH IRON [Concomitant]
  9. TOPROL-XL [Concomitant]

REACTIONS (4)
  - ADVERSE EVENT [None]
  - ASTHENIA [None]
  - FATIGUE [None]
  - MELAENA [None]
